FAERS Safety Report 7897355-2 (Version None)
Quarter: 2011Q4

REPORT INFORMATION
  Report Type: 
  Country: None (occurrence: None)
  Receive Date: 20111107
  Receipt Date: 20111029
  Transmission Date: 20120403
  Serious: Yes (Death, Other)
  Sender: FDA-Public Use
  Company Number: PHHY2011JP96307

PATIENT
  Age: 67 Year
  Sex: Female

DRUGS (3)
  1. PREDNISOLONE [Concomitant]
     Dosage: 20 MG, UNK
     Dates: start: 20050301
  2. PREDNISOLONE [Concomitant]
     Dosage: 15 MG, UNK
     Dates: start: 20050501
  3. CYCLOSPORINE [Suspect]
     Dosage: 5 MG/KG, UNK
     Dates: end: 20040101

REACTIONS (21)
  - FUNGAL SKIN INFECTION [None]
  - ALTERNARIA INFECTION [None]
  - SKIN ULCER [None]
  - RESPIRATORY FAILURE [None]
  - PNEUMONIA [None]
  - ATELECTASIS [None]
  - RASH [None]
  - CONJUNCTIVITIS [None]
  - OBLITERATIVE BRONCHIOLITIS [None]
  - BRONCHIAL WALL THICKENING [None]
  - LYMPHADENOPATHY [None]
  - GLOSSITIS [None]
  - BLISTER [None]
  - ULCERATIVE KERATITIS [None]
  - CORNEAL PERFORATION [None]
  - DYSPNOEA [None]
  - RENAL IMPAIRMENT [None]
  - SUBCUTANEOUS ABSCESS [None]
  - LYMPHOCYTIC LYMPHOMA [None]
  - CYTOMEGALOVIRUS INFECTION [None]
  - ERYTHEMA [None]
